FAERS Safety Report 17170905 (Version 1)
Quarter: 2019Q4

REPORT INFORMATION
  Report Type: Other
  Country: FR (occurrence: FR)
  Receive Date: 20191218
  Receipt Date: 20191218
  Transmission Date: 20200122
  Serious: Yes (Other)
  Sender: FDA-Public Use
  Company Number: FR-VALIDUS PHARMACEUTICALS LLC-FR-2019VAL000853

PATIENT

DRUGS (4)
  1. AZITHROMYCIN ANHYDROUS. [Suspect]
     Active Substance: AZITHROMYCIN ANHYDROUS
     Indication: LEGIONELLA INFECTION
     Dosage: UNK
     Route: 048
     Dates: start: 20190913, end: 20190918
  2. INFLECTRA                          /01445601/ [Concomitant]
     Active Substance: INFLIXIMAB
     Indication: PRODUCT USED FOR UNKNOWN INDICATION
     Dosage: 100 MG, UNK
     Dates: start: 20180312, end: 20190717
  3. CEFOTAXIME SODIUM [Suspect]
     Active Substance: CEFOTAXIME SODIUM
     Indication: PRODUCT USED FOR UNKNOWN INDICATION
     Dosage: 1 G, UNK, INTRAOSSEOUS USE
     Route: 050
     Dates: start: 20190913, end: 20190920
  4. PARACETAMOL [Suspect]
     Active Substance: ACETAMINOPHEN
     Indication: PAIN
     Dosage: 1 G, Q4H
     Route: 048
     Dates: start: 20190907, end: 20190910

REACTIONS (4)
  - Cholestasis [Recovering/Resolving]
  - Dyshidrotic eczema [Recovered/Resolved]
  - Hepatocellular injury [Recovering/Resolving]
  - Lymphocytosis [Recovering/Resolving]

NARRATIVE: CASE EVENT DATE: 201909
